FAERS Safety Report 5187800-8 (Version None)
Quarter: 2006Q4

REPORT INFORMATION
  Report Type: 
  Country: None (occurrence: None)
  Receive Date: 20061221
  Receipt Date: 20061205
  Transmission Date: 20070319
  Serious: Yes (Death)
  Sender: FDA-Public Use
  Company Number: JP-BRISTOL-MYERS SQUIBB COMPANY-13604079

PATIENT
  Age: 77 Year
  Sex: Female

DRUGS (7)
  1. TAXOL [Suspect]
     Indication: UTERINE CANCER
     Route: 041
     Dates: start: 20060906, end: 20060906
  2. PARAPLATIN [Suspect]
     Indication: UTERINE CANCER
     Route: 041
     Dates: start: 20060906, end: 20060906
  3. DEXAMETHASONE [Concomitant]
  4. DIPHENHYDRAMINE HCL [Concomitant]
  5. ZANTAC [Concomitant]
  6. SEROTONE [Concomitant]
     Route: 041
     Dates: start: 20060705, end: 20060906
  7. HUMULIN 70/30 [Concomitant]
     Dates: start: 20060705, end: 20060906

REACTIONS (2)
  - GASTROINTESTINAL HAEMORRHAGE [None]
  - RENAL FAILURE ACUTE [None]
